FAERS Safety Report 14711643 (Version 16)
Quarter: 2020Q3

REPORT INFORMATION
  Report Type: Report from Study
  Country: US (occurrence: US)
  Receive Date: 20180403
  Receipt Date: 20200819
  Transmission Date: 20201102
  Serious: Yes (Hospitalization)
  Sender: FDA-Public Use
  Company Number: US-ACTELION-A-NJ2018-168600

PATIENT
  Age: 68 Year
  Sex: Female
  Weight: 64.4 kg

DRUGS (4)
  1. VELETRI [Suspect]
     Active Substance: EPOPROSTENOL
     Dosage: 60 NG/KG, PER MIN
     Route: 042
  2. VELETRI [Suspect]
     Active Substance: EPOPROSTENOL
     Indication: PULMONARY HYPERTENSION
     Dosage: 60 NG/KG, PER MIN
     Route: 042
  3. OPSUMIT [Suspect]
     Active Substance: MACITENTAN
     Indication: PULMONARY HYPERTENSION
     Dosage: 10 MG, QD
     Route: 048
     Dates: start: 20150625
  4. WARFARIN [Concomitant]
     Active Substance: WARFARIN

REACTIONS (32)
  - Pneumonia [Unknown]
  - Influenza like illness [Unknown]
  - Flushing [Unknown]
  - Catheter site pruritus [Recovered/Resolved]
  - Oxygen saturation decreased [Unknown]
  - Dyspnoea [Unknown]
  - Unevaluable event [Unknown]
  - Bronchitis [Unknown]
  - Headache [Unknown]
  - Lung disorder [Unknown]
  - Erythema [Unknown]
  - Rash macular [Unknown]
  - Urticaria [Unknown]
  - Nasal congestion [Unknown]
  - Cough [Unknown]
  - Dyspnoea exertional [Unknown]
  - Muscle strain [Unknown]
  - Speech disorder [Unknown]
  - Fluid retention [Unknown]
  - Application site pruritus [Recovered/Resolved]
  - Rash pruritic [Unknown]
  - Weight increased [Unknown]
  - Arthralgia [Unknown]
  - Skin irritation [Unknown]
  - Catheter site erythema [Unknown]
  - Fall [Unknown]
  - Application site erythema [Unknown]
  - Heart rate increased [Unknown]
  - Device leakage [Unknown]
  - Nasopharyngitis [Unknown]
  - Peripheral swelling [Unknown]
  - Catheter site pain [Unknown]

NARRATIVE: CASE EVENT DATE: 201804
